FAERS Safety Report 22309898 (Version 3)
Quarter: 2023Q2

REPORT INFORMATION
  Report Type: Report from Study
  Country: CN (occurrence: CN)
  Receive Date: 20230511
  Receipt Date: 20230621
  Transmission Date: 20230722
  Serious: Yes (Hospitalization)
  Sender: FDA-Public Use
  Company Number: CN-PFIZER INC-PV202300080925

PATIENT
  Age: 44 Year
  Sex: Female
  Weight: 52 kg

DRUGS (13)
  1. EPIRUBICIN HYDROCHLORIDE [Suspect]
     Active Substance: EPIRUBICIN HYDROCHLORIDE
     Indication: Invasive breast carcinoma
     Dosage: 90 MG/M2, Q2W
     Route: 041
     Dates: start: 20230131, end: 20230328
  2. CYCLOPHOSPHAMIDE [Suspect]
     Active Substance: CYCLOPHOSPHAMIDE
     Indication: Invasive breast carcinoma
     Dosage: 500 MG/M2, Q2W
     Route: 041
     Dates: start: 20230131, end: 20230328
  3. INVESTIGATIONAL PRODUCT [Suspect]
     Active Substance: INVESTIGATIONAL PRODUCT
     Indication: Invasive breast carcinoma
     Dosage: 200 MG, Q2W
     Route: 041
     Dates: start: 20220923, end: 20221209
  4. PACLITAXEL [Suspect]
     Active Substance: PACLITAXEL
     Indication: Invasive breast carcinoma
     Dosage: 100 MG/M2, ON D1, D8 AND D15 (3-WEEK DOSING FOLLOWED BY ONE-WEEK INTERVAL)
     Route: 041
     Dates: start: 20220923, end: 20221209
  5. CARBOPLATIN [Suspect]
     Active Substance: CARBOPLATIN
     Indication: Invasive breast carcinoma
     Dosage: 1.5 MG/ML.MIN ADMINISTRATION ON D1, D8 AND D15 (3-WEEK DOSING FOLLOWED BY ONE-WEEK INTERVAL)
     Route: 041
     Dates: start: 20220923, end: 20221209
  6. HUANG QI JING [Concomitant]
     Indication: Anaemia
     Dosage: 10 ML, 2X/DAY
     Route: 048
     Dates: start: 20230322, end: 20230521
  7. ENTECAVIR [Concomitant]
     Active Substance: ENTECAVIR
     Indication: Hepatic cirrhosis
     Dosage: 0.5 MG, 1X/DAY
     Route: 048
     Dates: start: 20220908
  8. FU FANG ZAO FAN [Concomitant]
     Indication: Anaemia
     Dosage: 1.2 G, 3X/DAY
     Route: 048
     Dates: start: 20230430, end: 20230507
  9. GRANULOCYTE COLONY-STIMULATING FACTOR NOS [Concomitant]
     Active Substance: GRANULOCYTE COLONY-STIMULATING FACTOR NOS
     Indication: White blood cell count decreased
     Dosage: 200 UG, 1X/DAY
     Route: 058
     Dates: start: 20230502, end: 20230502
  10. GRANULOCYTE COLONY-STIMULATING FACTOR NOS [Concomitant]
     Active Substance: GRANULOCYTE COLONY-STIMULATING FACTOR NOS
     Dosage: 200 UG, 1X/DAY
     Route: 058
     Dates: start: 20230524, end: 20230524
  11. LEUCOGEN [Concomitant]
     Active Substance: LEUCOGEN
     Indication: Prophylaxis
     Dosage: 20 MG, 3X/DAY
     Route: 048
     Dates: start: 20230507, end: 20230522
  12. SHENG XUE XIAO BAN [Concomitant]
     Indication: Platelet count decreased
     Dosage: 1.8 G, 3X/DAY
     Route: 048
     Dates: start: 20230523, end: 20230524
  13. ALBUMIN HUMAN [Concomitant]
     Active Substance: ALBUMIN HUMAN
     Indication: Hypoalbuminaemia
     Dosage: 50 ML, 2X/DAY
     Route: 048
     Dates: start: 20230430, end: 20230501

REACTIONS (1)
  - Pleural effusion [Not Recovered/Not Resolved]

NARRATIVE: CASE EVENT DATE: 20230421
